FAERS Safety Report 7483989-6 (Version None)
Quarter: 2011Q2

REPORT INFORMATION
  Report Type: 
  Country: None (occurrence: None)
  Receive Date: 20110517
  Receipt Date: 20110512
  Transmission Date: 20111010
  Serious: Yes (Other)
  Sender: FDA-Public Use
  Company Number: US-PFIZER INC-2011103223

PATIENT
  Sex: Female
  Weight: 62.132 kg

DRUGS (5)
  1. FEXOFENADINE [Concomitant]
     Indication: HYPERSENSITIVITY
     Dosage: 180 MG, UNK
  2. CITALOPRAM [Concomitant]
     Indication: ANXIETY
     Dosage: 40 MG, 1.5 DF, UNK
  3. BUSPIRONE [Concomitant]
     Indication: ANXIETY
     Dosage: 30 MG,  DAILY
  4. CHANTIX [Suspect]
     Dosage: UNK
     Dates: start: 20110501
  5. CHANTIX [Suspect]
     Indication: SMOKING CESSATION THERAPY
     Dosage: 0.5 MG, 1X/DAY
     Route: 048
     Dates: start: 20110501, end: 20110501

REACTIONS (1)
  - FEELING OF DESPAIR [None]
